FAERS Safety Report 23309977 (Version 2)
Quarter: 2024Q1

REPORT INFORMATION
  Report Type: Report from Study
  Country: GR (occurrence: GR)
  Receive Date: 20231218
  Receipt Date: 20240130
  Transmission Date: 20240410
  Serious: Yes (Life-Threatening, Hospitalization, Disabling)
  Sender: FDA-Public Use
  Company Number: GR-Merck Healthcare KGaA-9404416

PATIENT
  Age: 74 Year
  Sex: Male
  Weight: 64 kg

DRUGS (8)
  1. INLYTA [Suspect]
     Active Substance: AXITINIB
     Indication: Renal cell carcinoma
     Dosage: UNK
  2. BAVENCIO [Suspect]
     Active Substance: AVELUMAB
     Indication: Renal cell carcinoma
     Dosage: UNK
     Dates: start: 20230424
  3. XANAX [Concomitant]
     Active Substance: ALPRAZOLAM
     Indication: Anxiety disorder
     Dosage: 0.5 MG; 0.5 DAY
     Dates: start: 20151013
  4. ASPIRIN [Concomitant]
     Active Substance: ASPIRIN
     Indication: Prophylaxis
     Dosage: 100 MG, 1X/DAY
     Dates: start: 20160920, end: 20230622
  5. EZETIMIBE\SIMVASTATIN [Concomitant]
     Active Substance: EZETIMIBE\SIMVASTATIN
     Indication: Dyslipidaemia
     Dosage: 10 PLUS 10 MG
     Dates: start: 20141222
  6. METOPROLOL FUMARATE [Concomitant]
     Active Substance: METOPROLOL FUMARATE
     Indication: Prophylaxis
     Dosage: 25 MG, 1X/DAY
     Dates: start: 20201013
  7. TAMSULOSIN HYDROCHLORIDE [Concomitant]
     Active Substance: TAMSULOSIN HYDROCHLORIDE
     Indication: Benign prostatic hyperplasia
     Dosage: 0.4 MG, 1X/DAY
     Dates: start: 20191022
  8. ENTECAVIR [ENTECAVIR MONOHYDRATE] [Concomitant]
     Indication: Prophylaxis
     Dosage: 0.5 MG, 1X/DAY
     Dates: start: 20230508

REACTIONS (5)
  - Loss of consciousness [Recovered/Resolved]
  - Haemorrhage intracranial [Recovered/Resolved]
  - Hypothyroidism [Recovered/Resolved]
  - Blood creatinine increased [Recovered/Resolved]
  - Hypertension [Recovered/Resolved]

NARRATIVE: CASE EVENT DATE: 20230424
